FAERS Safety Report 12513539 (Version 1)
Quarter: 2016Q2

REPORT INFORMATION
  Report Type: Spontaneous
  Country: US (occurrence: None)
  Receive Date: 20160629
  Receipt Date: 20160629
  Transmission Date: 20160815
  Serious: Yes (Life-Threatening, Hospitalization)
  Sender: FDA-Public Use
  Company Number: None

PATIENT
  Age: 53 Year
  Sex: Male

DRUGS (10)
  1. FLUPHENAZINE DECANOATE. [Concomitant]
     Active Substance: FLUPHENAZINE DECANOATE
  2. CLOZAPINE. [Suspect]
     Active Substance: CLOZAPINE
     Indication: SCHIZOPHRENIA
     Route: 048
     Dates: start: 20150702, end: 20150713
  3. BENZTROPINE [Concomitant]
     Active Substance: BENZTROPINE
  4. VITAMIN D [Concomitant]
     Active Substance: CHOLECALCIFEROL
  5. MULTIVITAMIN [Concomitant]
     Active Substance: VITAMINS
  6. BENZTROPINE [Concomitant]
     Active Substance: BENZTROPINE
  7. LORAZEPAM. [Concomitant]
     Active Substance: LORAZEPAM
  8. SENSODYNE [Concomitant]
     Active Substance: POTASSIUM NITRATE\SODIUM FLUORIDE
  9. ASENAPINE [Concomitant]
     Active Substance: ASENAPINE
  10. ACETAMINOPHEN. [Concomitant]
     Active Substance: ACETAMINOPHEN

REACTIONS (5)
  - Pyrexia [None]
  - Chest pain [None]
  - Myocarditis [None]
  - C-reactive protein increased [None]
  - Troponin increased [None]

NARRATIVE: CASE EVENT DATE: 20150710
